FAERS Safety Report 7425464-0 (Version None)
Quarter: 2011Q2

REPORT INFORMATION
  Report Type: 
  Country: None (occurrence: None)
  Receive Date: 20110420
  Receipt Date: 20110413
  Transmission Date: 20111010
  Serious: Yes (Other)
  Sender: FDA-Public Use
  Company Number: BR-NOVOPROD-326780

PATIENT
  Age: 71 Year
  Sex: Female
  Weight: 55 kg

DRUGS (8)
  1. ATENOLOL [Concomitant]
     Indication: BLOOD PRESSURE
     Dosage: 50 MG, QD
     Route: 048
     Dates: start: 19910413
  2. ACETYLSALICYLIC ACID SRT [Concomitant]
     Dosage: 100 MG, QD
  3. SIMVASTATIN [Concomitant]
     Dosage: 20 MG, QD
  4. LEVEMIR [Suspect]
     Indication: TYPE 2 DIABETES MELLITUS
     Dosage: 16 U, QD
     Route: 058
     Dates: start: 20110330
  5. HYDROCHLOROTHIAZIDE [Concomitant]
     Dosage: .5 TAB, QD
     Route: 048
     Dates: start: 19910413
  6. METFORMIN [Concomitant]
     Indication: DIABETES MELLITUS
     Dosage: 2550 MG, QD
     Route: 048
     Dates: start: 20110413
  7. LOSARTAN POTASSIUM [Concomitant]
     Indication: BLOOD PRESSURE
     Dosage: 50 MG, QD
     Route: 048
     Dates: start: 19910413
  8. AMLODIPINE [Concomitant]
     Dosage: 5 MG, QD

REACTIONS (5)
  - SKIN EXFOLIATION [None]
  - SKIN HAEMORRHAGE [None]
  - ERYTHEMA [None]
  - ENANTHEMA [None]
  - PRURITUS [None]
